FAERS Safety Report 17583171 (Version 1)
Quarter: 2020Q1

REPORT INFORMATION
  Report Type: Spontaneous
  Country: CN (occurrence: CN)
  Receive Date: 20200325
  Receipt Date: 20200325
  Transmission Date: 20200409
  Serious: Yes (Other)
  Sender: FDA-Public Use
  Company Number: CN-BAXTER-2020BAX006314

PATIENT
  Age: 80 Year
  Sex: Male
  Weight: 76 kg

DRUGS (7)
  1. ASIXINTAI (ACETYLCYSTEINE) [Suspect]
     Active Substance: ACETYLCYSTEINE
     Dosage: WITH 500 ML 5% GLUCOSE INJECTION
     Route: 041
     Dates: start: 20191210, end: 20191210
  2. STERILE WATER FOR INJECTION [Suspect]
     Active Substance: WATER
     Indication: IRRIGATION THERAPY
     Dosage: IRRIGATION
     Route: 065
     Dates: start: 20191209
  3. MAGNESIUM SULFATE. [Suspect]
     Active Substance: MAGNESIUM SULFATE
     Indication: SWELLING
     Dosage: SOLUTION?EXTERNAL APPLICATION
     Route: 061
     Dates: start: 20191209, end: 20191209
  4. 0.9% SODIUM CHLORIDE INJECTION [Suspect]
     Active Substance: SODIUM CHLORIDE
     Indication: IRRIGATION THERAPY
     Route: 065
     Dates: start: 20191209
  5. 5% GLUCOSE  INJECTION [Suspect]
     Active Substance: DEXTROSE
     Dosage: ADJUSTED REGIMEN
     Route: 041
     Dates: start: 20191210, end: 20191210
  6. ASIXINTAI (ACETYLCYSTEINE) [Suspect]
     Active Substance: ACETYLCYSTEINE
     Indication: HEPATIC CIRRHOSIS
     Dosage: WITH 200 ML 5% GLUCOSE INJECTION
     Route: 041
     Dates: start: 20191110, end: 20191209
  7. 5% GLUCOSE  INJECTION [Suspect]
     Active Substance: DEXTROSE
     Indication: HEPATIC CIRRHOSIS
     Route: 041
     Dates: start: 20191110, end: 20191209

REACTIONS (6)
  - Dermatitis [Unknown]
  - Injection site vesicles [Recovered/Resolved]
  - Injection site oedema [Recovering/Resolving]
  - Injection site extravasation [Unknown]
  - Necrosis [Unknown]
  - Injection site pain [Unknown]

NARRATIVE: CASE EVENT DATE: 20191209
